FAERS Safety Report 4696571-0 (Version None)
Quarter: 2005Q2

REPORT INFORMATION
  Report Type: 
  Country: None (occurrence: None)
  Receive Date: 20050620
  Receipt Date: 20050422
  Transmission Date: 20051028
  Serious: Yes (Other)
  Sender: FDA-Public Use
  Company Number: 200512032US

PATIENT
  Age: 53 Year
  Sex: Male

DRUGS (11)
  1. LANTUS [Suspect]
     Indication: DIABETES MELLITUS INSULIN-DEPENDENT
     Dosage: 35 U QPM
     Dates: start: 20050311
  2. LANTUS [Suspect]
     Indication: DIABETES MELLITUS INSULIN-DEPENDENT
     Dosage: 35 U QPM
     Dates: start: 20050311
  3. HUMALOG [Suspect]
     Indication: DIABETES MELLITUS INSULIN-DEPENDENT
     Dosage: 7 (SLIDING SCALE) U AC
  4. ACCUPRIL [Concomitant]
  5. METOPROLOL SUCCINATE [Concomitant]
  6. LIPITOR [Concomitant]
  7. NEXIUM [Concomitant]
  8. ASPIRIN [Concomitant]
  9. HYDROCHLOROTHIAZIDE [Concomitant]
  10. INSULIN INJECTION, ISOPHANE (NPH INSULIN) [Concomitant]
  11. REGULAR INSULIN [Concomitant]

REACTIONS (4)
  - BLOOD GLUCOSE INCREASED [None]
  - HOSTILITY [None]
  - HYPOGLYCAEMIA [None]
  - INCOHERENT [None]
